FAERS Safety Report 7616865-6 (Version None)
Quarter: 2011Q3

REPORT INFORMATION
  Report Type: 
  Country: None (occurrence: None)
  Receive Date: 20110718
  Receipt Date: 20110706
  Transmission Date: 20111222
  Serious: No
  Sender: FDA-Public Use
  Company Number: US-BIOGENIDEC-2011BI025089

PATIENT
  Age: 19 Year
  Sex: Female

DRUGS (1)
  1. TYSABRI [Suspect]
     Indication: MULTIPLE SCLEROSIS
     Route: 042
     Dates: start: 20080925, end: 20110330

REACTIONS (7)
  - ASTHENIA [None]
  - CREPITATIONS [None]
  - GAIT DISTURBANCE [None]
  - VIITH NERVE PARALYSIS [None]
  - SPEECH DISORDER [None]
  - DIPLOPIA [None]
  - PAIN [None]
